FAERS Safety Report 25807029 (Version 2)
Quarter: 2025Q3

REPORT INFORMATION
  Report Type: Spontaneous
  Country: US (occurrence: US)
  Receive Date: 20250916
  Receipt Date: 20250918
  Transmission Date: 20251021
  Serious: Yes (Other)
  Sender: PFIZER
  Company Number: US-MLMSERVICE-20250905-PI632513-00218-1

PATIENT
  Age: 19 Year
  Sex: Male

DRUGS (1)
  1. METHOTREXATE SODIUM [Suspect]
     Active Substance: METHOTREXATE SODIUM
     Indication: Blastic plasmacytoid dendritic cell neoplasia

REACTIONS (2)
  - Leukoencephalopathy [Unknown]
  - Off label use [Unknown]
